FAERS Safety Report 7145079-1 (Version None)
Quarter: 2010Q4

REPORT INFORMATION
  Report Type: 
  Country: None (occurrence: None)
  Receive Date: 20101124
  Receipt Date: 20101108
  Transmission Date: 20110411
  Serious: Yes (Hospitalization)
  Sender: FDA-Public Use
  Company Number: DSA_44358_2010

PATIENT
  Age: 73 Year
  Sex: Male

DRUGS (3)
  1. ENALAPRIL MALEATE [Suspect]
     Indication: PRODUCT USED FOR UNKNOWN INDICATION
     Dosage: DF ORAL
     Route: 048
     Dates: start: 20100410, end: 20100420
  2. NASONEX [Concomitant]
  3. OMEPRAZOL /00661201/ [Concomitant]

REACTIONS (2)
  - CHOLESTASIS [None]
  - PORTAL VEIN THROMBOSIS [None]
